FAERS Safety Report 8571695-6 (Version None)
Quarter: 2012Q3

REPORT INFORMATION
  Report Type: 
  Country: None (occurrence: None)
  Receive Date: 20120806
  Receipt Date: 20120730
  Transmission Date: 20120928
  Serious: Yes (Other)
  Sender: FDA-Public Use
  Company Number: CA-JNJFOC-20120800533

PATIENT
  Sex: Female
  Weight: 75.4 kg

DRUGS (5)
  1. REMICADE [Suspect]
     Indication: RHEUMATOID ARTHRITIS
     Route: 042
     Dates: start: 20060320
  2. CELEBREX [Concomitant]
     Route: 065
  3. METHOTREXATE [Concomitant]
     Route: 065
  4. ALBUTEROL SULATE [Concomitant]
     Route: 065
  5. NASONEX [Concomitant]
     Route: 065

REACTIONS (1)
  - GALLBLADDER OPERATION [None]
